FAERS Safety Report 8456277-9 (Version None)
Quarter: 2012Q2

REPORT INFORMATION
  Report Type: 
  Country: None (occurrence: None)
  Receive Date: 20120621
  Receipt Date: 20120611
  Transmission Date: 20120825
  Serious: Yes (Hospitalization, Other)
  Sender: FDA-Public Use
  Company Number: US-BAYER-2012-022271

PATIENT
  Age: 33 Year
  Sex: Female
  Weight: 54.921 kg

DRUGS (5)
  1. PREDNISONE TAB [Concomitant]
     Dosage: UNK
     Dates: start: 20060905
  2. YASMIN [Suspect]
     Indication: PRODUCT USED FOR UNKNOWN INDICATION
     Dosage: UNK
     Dates: start: 20060524, end: 20060905
  3. KETEK [Concomitant]
     Dosage: UNK
     Dates: start: 20060905
  4. ZITHROMAX [Concomitant]
     Dosage: UNK
     Dates: start: 20060905
  5. CLARINEX [Concomitant]
     Dosage: UNK
     Dates: start: 20060905

REACTIONS (2)
  - PULMONARY EMBOLISM [None]
  - DEEP VEIN THROMBOSIS [None]
